FAERS Safety Report 9757057 (Version 1)
Quarter: 2013Q4

REPORT INFORMATION
  Report Type: Report from Study
  Country: US (occurrence: US)
  Receive Date: 20131213
  Receipt Date: 20131213
  Transmission Date: 20140711
  Serious: Yes (Death)
  Sender: FDA-Public Use
  Company Number: US-PFIZER INC-2013355264

PATIENT
  Age: 51 Year
  Sex: Male

DRUGS (3)
  1. FENTANYL [Suspect]
     Dosage: TOTAL 100 UG/H
     Route: 062
  2. OXYCODONE HYDROCHLORIDE [Suspect]
     Dosage: UNK
  3. DESIPRAMINE [Suspect]
     Dosage: UNK

REACTIONS (1)
  - Overdose [Fatal]
